FAERS Safety Report 18725097 (Version 1)
Quarter: 2021Q1

REPORT INFORMATION
  Report Type: Spontaneous
  Country: CA (occurrence: CA)
  Receive Date: 20210111
  Receipt Date: 20210111
  Transmission Date: 20210419
  Serious: Yes (Hospitalization, Other)
  Sender: FDA-Public Use
  Company Number: CA-TEVA-2021-CA-1865961

PATIENT
  Age: 19 Month
  Sex: Male

DRUGS (9)
  1. CLONIDINE. [Concomitant]
     Active Substance: CLONIDINE
  2. MELATONIN [Concomitant]
     Active Substance: MELATONIN
  3. OMEPRAZOLE. [Concomitant]
     Active Substance: OMEPRAZOLE
  4. BACLOFEN. [Concomitant]
     Active Substance: BACLOFEN
  5. LEVETIRACETAM. [Concomitant]
     Active Substance: LEVETIRACETAM
  6. DIAZEPAM. [Concomitant]
     Active Substance: DIAZEPAM
  7. TOPIRAMATE TABLETS [Suspect]
     Active Substance: TOPIRAMATE
     Indication: EPILEPSY
  8. PHENOBARBITAL. [Concomitant]
     Active Substance: PHENOBARBITAL
  9. DOMPERIDONE [Concomitant]
     Active Substance: DOMPERIDONE

REACTIONS (1)
  - Neutrophil count decreased [Recovered/Resolved]
